FAERS Safety Report 8958621 (Version 1)
Quarter: 2012Q4

REPORT INFORMATION
  Report Type: Spontaneous
  Country: US (occurrence: None)
  Receive Date: 20121206
  Receipt Date: 20121206
  Transmission Date: 20130627
  Serious: No
  Sender: FDA-Public Use
  Company Number: None

PATIENT
  Age: 79 Year
  Sex: Female
  Weight: 51.71 kg

DRUGS (1)
  1. AZASITE 1% INSPIRE [Suspect]
     Indication: CHRONIC CONJUNCTIVITIS
     Dosage: 1 drop per application each eye 1 week per month
     Route: 061
     Dates: start: 20121128, end: 20121130

REACTIONS (3)
  - Eye pain [None]
  - Eye pruritus [None]
  - Discomfort [None]
